FAERS Safety Report 8424315-5 (Version None)
Quarter: 2012Q2

REPORT INFORMATION
  Report Type: 
  Country: None (occurrence: None)
  Receive Date: 20120608
  Receipt Date: 20120130
  Transmission Date: 20120825
  Serious: No
  Sender: FDA-Public Use
  Company Number: US-ASTRAZENECA-2011SE72851

PATIENT
  Age: 53 Year
  Sex: Female
  Weight: 53.1 kg

DRUGS (7)
  1. VENTOLIN DS [Concomitant]
     Indication: EMERGENCY CARE
  2. MELATONIN [Concomitant]
     Indication: SLEEP DISORDER
  3. ZERTEC OTC [Concomitant]
     Indication: HYPERSENSITIVITY
  4. IBUPROFEN OTC [Concomitant]
     Indication: PAIN
  5. PULMICORT FLEXHALER [Suspect]
     Indication: ASTHMA
     Route: 055
  6. PULMICORT FLEXHALER [Suspect]
     Dosage: 2 PUFFS BID INHALER
     Route: 055
  7. SELEXA [Concomitant]
     Indication: DEPRESSION

REACTIONS (2)
  - DYSPNOEA [None]
  - INCORRECT DOSE ADMINISTERED [None]
